FAERS Safety Report 18342936 (Version 1)
Quarter: 2020Q4

REPORT INFORMATION
  Report Type: Report from Study
  Country: IT (occurrence: IT)
  Receive Date: 20201005
  Receipt Date: 20201005
  Transmission Date: 20210113
  Serious: Yes (Hospitalization)
  Sender: FDA-Public Use
  Company Number: IT-ACCORD-204213

PATIENT
  Age: 73 Year
  Sex: Male

DRUGS (8)
  1. ACICLOVIR [Concomitant]
     Active Substance: ACYCLOVIR
  2. RITUXIMAB. [Suspect]
     Active Substance: RITUXIMAB
     Indication: LYMPHOMA
     Route: 042
     Dates: start: 20181031, end: 20190318
  3. BACTRIM [Concomitant]
     Active Substance: SULFAMETHOXAZOLE\TRIMETHOPRIM
     Dosage: STRENGTH: 160 MG + 800 MG
  4. BENDAMUSTINE [Suspect]
     Active Substance: BENDAMUSTINE
     Indication: LYMPHOMA
     Route: 042
     Dates: start: 20181031, end: 20190318
  5. SOTALOL. [Concomitant]
     Active Substance: SOTALOL
  6. FERRO-GRAD [Concomitant]
     Active Substance: FERROUS SULFATE
  7. ARANESP [Concomitant]
     Active Substance: DARBEPOETIN ALFA
     Dosage: 10 MICROGRAMS SOLUTION FOR INJECTION IN PRE-FILLED SYRINGE
  8. ALLOPURINOL. [Concomitant]
     Active Substance: ALLOPURINOL

REACTIONS (3)
  - Hyperpyrexia [Recovering/Resolving]
  - Dyspnoea exertional [Recovering/Resolving]
  - COVID-19 pneumonia [Recovering/Resolving]

NARRATIVE: CASE EVENT DATE: 20200809
